FAERS Safety Report 10511105 (Version 2)
Quarter: 2014Q4

REPORT INFORMATION
  Report Type: Report from Study
  Country: US (occurrence: US)
  Receive Date: 20141010
  Receipt Date: 20141125
  Transmission Date: 20150528
  Serious: Yes (Death, Hospitalization, Other)
  Sender: FDA-Public Use
  Company Number: US-GILEAD-2014-0117150

PATIENT
  Age: 37 Year
  Sex: Female
  Weight: 59.86 kg

DRUGS (1)
  1. AZTREONAM LYSINE [Suspect]
     Active Substance: AZTREONAM LYSINE
     Indication: PSEUDOMONAS INFECTION
     Dosage: 75 MG, UNK
     Route: 055
     Dates: start: 20140520

REACTIONS (5)
  - Cystic fibrosis [Fatal]
  - Respiratory failure [Unknown]
  - Septic shock [Fatal]
  - Pneumonia pseudomonal [Unknown]
  - Cardio-respiratory arrest [Fatal]
